FAERS Safety Report 7572573-1 (Version None)
Quarter: 2011Q2

REPORT INFORMATION
  Report Type: 
  Country: None (occurrence: None)
  Receive Date: 20110627
  Receipt Date: 20110615
  Transmission Date: 20111010
  Serious: No
  Sender: FDA-Public Use
  Company Number: US-BIOGENIDEC-2011BI020089

PATIENT
  Sex: Female

DRUGS (1)
  1. TYSABRI [Suspect]
     Indication: MULTIPLE SCLEROSIS
     Route: 042
     Dates: start: 20090224

REACTIONS (6)
  - COORDINATION ABNORMAL [None]
  - VIRAL INFECTION [None]
  - PNEUMONIA [None]
  - CYSTITIS [None]
  - COUGH [None]
  - NASOPHARYNGITIS [None]
